FAERS Safety Report 5715892-3 (Version None)
Quarter: 2008Q2

REPORT INFORMATION
  Report Type: 
  Country: None (occurrence: None)
  Receive Date: 20080424
  Receipt Date: 20080415
  Transmission Date: 20081010
  Serious: Yes (Death)
  Sender: FDA-Public Use
  Company Number: JP-TEVA-170234ISR

PATIENT
  Age: 17 Month
  Sex: Male

DRUGS (3)
  1. CISPLATIN [Suspect]
     Indication: HEPATOBLASTOMA
  2. PIRARUBICIN [Suspect]
     Indication: HEPATOBLASTOMA
  3. CARBOPLATIN [Suspect]
     Indication: HEPATOBLASTOMA

REACTIONS (1)
  - ACUTE MYELOMONOCYTIC LEUKAEMIA [None]
